FAERS Safety Report 9548301 (Version 1)
Quarter: 2013Q3

REPORT INFORMATION
  Report Type: Spontaneous
  Country: US (occurrence: None)
  Receive Date: 20130711
  Receipt Date: 20130711
  Transmission Date: 20140515
  Serious: Yes (Other)
  Sender: FDA-Public Use
  Company Number: 2224_SP

PATIENT
  Age: 27 Year
  Sex: Female
  Weight: 90.72 kg

DRUGS (1)
  1. LEVOFLOXACIN/DEXTROSE 5 % [Suspect]
     Indication: PYELONEPHRITIS
     Route: 042
     Dates: start: 20130424, end: 20130424

REACTIONS (2)
  - Injection site pruritus [None]
  - Injection site erythema [None]
